FAERS Safety Report 4816897-7 (Version None)
Quarter: 2005Q4

REPORT INFORMATION
  Report Type: 
  Country: None (occurrence: None)
  Receive Date: 20051031
  Receipt Date: 20051031
  Transmission Date: 20060501
  Serious: Yes (Hospitalization)
  Sender: FDA-Public Use
  Company Number: None

PATIENT
  Age: 62 Year
  Sex: Male

DRUGS (9)
  1. FUROSEMIDE [Suspect]
     Indication: HYPERTENSION
     Dosage: 40 MG QD
     Dates: start: 20030701
  2. HUMULIN 70/30 [Concomitant]
  3. PLAVIX [Concomitant]
  4. GABAPENTIN [Concomitant]
  5. ISOSORBIDE [Concomitant]
  6. OMEPRAZOLE [Concomitant]
  7. CITALOPRAM [Concomitant]
  8. METOCLOPRAMINE [Concomitant]
  9. VALSARTAN [Concomitant]

REACTIONS (1)
  - SYNCOPE [None]
